FAERS Safety Report 9711206 (Version 2)
Quarter: 2014Q2

REPORT INFORMATION
  Report Type: Spontaneous
  Country: US (occurrence: US)
  Receive Date: 20131126
  Receipt Date: 20140510
  Transmission Date: 20141212
  Serious: No
  Sender: FDA-Public Use
  Company Number: US-BRISTOL-MYERS SQUIBB COMPANY-18736751

PATIENT
  Age: 56 Year
  Sex: Female
  Weight: 93.42 kg

DRUGS (17)
  1. BYDUREON  2MG SUSPENSION [Suspect]
     Indication: DIABETES MELLITUS
     Dosage: EXP:APR16
     Route: 058
     Dates: start: 201303
  2. BYDUREON  2MG SUSPENSION [Suspect]
     Indication: DIABETES MELLITUS
     Route: 058
     Dates: start: 201303
  3. CEFTIN [Concomitant]
  4. NOVOLOG [Concomitant]
  5. LEVEMIR [Concomitant]
  6. TIROSINT [Concomitant]
  7. CYMBALTA [Concomitant]
  8. VITAMIN D3 [Concomitant]
  9. VITAMIN B12 [Concomitant]
  10. URSODIOL [Concomitant]
  11. TENEX [Concomitant]
  12. COREG [Concomitant]
  13. NORVASC [Concomitant]
  14. POTASSIUM [Concomitant]
  15. PERCOCET [Concomitant]
  16. XANAX [Concomitant]
  17. FLAVOXATE HCL [Concomitant]

REACTIONS (8)
  - Injection site extravasation [Recovered/Resolved]
  - Injection site haemorrhage [Unknown]
  - Blood glucose increased [Unknown]
  - Weight decreased [Unknown]
  - Injection site pain [Unknown]
  - Injection site mass [Recovering/Resolving]
  - Injection site discolouration [Not Recovered/Not Resolved]
  - Nipple infection [Unknown]
